FAERS Safety Report 24017055 (Version 4)
Quarter: 2024Q3

REPORT INFORMATION
  Report Type: Report from Study
  Country: US (occurrence: US)
  Receive Date: 20240626
  Receipt Date: 20240724
  Transmission Date: 20241017
  Serious: No
  Sender: ALEXION PHARMACEUTICALS
  Company Number: US-AstraZeneca-CH-00650847A

PATIENT
  Age: 62 Year
  Sex: Female

DRUGS (1)
  1. STRENSIQ [Suspect]
     Active Substance: ASFOTASE ALFA
     Indication: Hypophosphatasia
     Dosage: 80 MILLIGRAM, SIX TIMES/WEEK
     Route: 058
     Dates: start: 20240518

REACTIONS (6)
  - Diarrhoea [Recovering/Resolving]
  - Fatigue [Unknown]
  - Injection site pain [Unknown]
  - Flatulence [Not Recovered/Not Resolved]
  - Abdominal pain upper [Recovering/Resolving]
  - Peripheral swelling [Not Recovered/Not Resolved]

NARRATIVE: CASE EVENT DATE: 20240501
